FAERS Safety Report 5702921-6 (Version None)
Quarter: 2008Q2

REPORT INFORMATION
  Report Type: 
  Country: None (occurrence: None)
  Receive Date: 20080411
  Receipt Date: 20080401
  Transmission Date: 20081010
  Serious: Yes (Other)
  Sender: FDA-Public Use
  Company Number: US-MERCK-0804USA00275

PATIENT
  Age: 47 Year
  Sex: Male

DRUGS (3)
  1. DECADRON [Suspect]
     Route: 048
     Dates: start: 20071001
  2. REVLIMID [Suspect]
     Indication: MULTIPLE MYELOMA
     Route: 048
     Dates: start: 20071109
  3. AREDIA [Concomitant]
     Route: 042

REACTIONS (2)
  - MULTIPLE MYELOMA [None]
  - THROMBOPHLEBITIS SUPERFICIAL [None]
